FAERS Safety Report 9781382 (Version 1)
Quarter: 2013Q4

REPORT INFORMATION
  Report Type: Spontaneous
  Country: CH (occurrence: CH)
  Receive Date: 20131224
  Receipt Date: 20131224
  Transmission Date: 20140711
  Serious: Yes (Other)
  Sender: FDA-Public Use
  Company Number: CH-ASTRAZENECA-2013SE92764

PATIENT
  Age: 0 None
  Sex: Male
  Weight: 2.7 kg

DRUGS (5)
  1. SEROQUEL [Suspect]
     Route: 064
     Dates: start: 2013, end: 201307
  2. XANAX [Suspect]
     Route: 064
     Dates: start: 2012
  3. METHADONE [Suspect]
     Route: 064
  4. METHADONE [Suspect]
     Route: 064
  5. TOPAMAX [Suspect]
     Route: 064
     Dates: end: 201305

REACTIONS (2)
  - Drug withdrawal syndrome neonatal [Unknown]
  - Foetal growth restriction [Unknown]
